FAERS Safety Report 18072385 (Version 1)
Quarter: 2020Q3

REPORT INFORMATION
  Report Type: Spontaneous
  Country: US (occurrence: US)
  Receive Date: 20200727
  Receipt Date: 20200727
  Transmission Date: 20201103
  Serious: Yes (Other)
  Sender: FDA-Public Use
  Company Number: US-PFIZER INC-2020281595

PATIENT
  Sex: Female

DRUGS (11)
  1. AMOXICILLIN/CLAVULANIC ACID [Suspect]
     Active Substance: AMOXICILLIN\CLAVULANIC ACID
     Indication: ANTIFUNGAL TREATMENT
  2. AMOXICILLIN/CLAVULANIC ACID [Suspect]
     Active Substance: AMOXICILLIN\CLAVULANIC ACID
     Indication: BACTERIAL INFECTION
  3. PACLITAXEL. [Suspect]
     Active Substance: PACLITAXEL
     Indication: VULVAR ADENOCARCINOMA
     Dosage: UNK
     Route: 064
     Dates: start: 2019
  4. CEPHALEXIN [CEFALEXIN] [Suspect]
     Active Substance: CEPHALEXIN
     Indication: ANTIBIOTIC THERAPY
  5. AMOXICILLIN/CLAVULANIC ACID [Suspect]
     Active Substance: AMOXICILLIN\CLAVULANIC ACID
     Indication: EVIDENCE BASED TREATMENT
     Dosage: UNK
     Route: 064
     Dates: start: 201812
  6. CLOTRIMAZOLE. [Suspect]
     Active Substance: CLOTRIMAZOLE
     Indication: EVIDENCE BASED TREATMENT
     Dosage: UNK
     Dates: start: 201812
  7. CLOTRIMAZOLE. [Suspect]
     Active Substance: CLOTRIMAZOLE
     Indication: ANTIFUNGAL TREATMENT
  8. CLOTRIMAZOLE. [Suspect]
     Active Substance: CLOTRIMAZOLE
     Indication: BACTERIAL INFECTION
  9. CARBOPLATIN. [Suspect]
     Active Substance: CARBOPLATIN
     Indication: VULVAR ADENOCARCINOMA
     Dosage: UNK
     Route: 064
     Dates: start: 2019
  10. CEPHALEXIN [CEFALEXIN] [Suspect]
     Active Substance: CEPHALEXIN
     Indication: BACTERIAL INFECTION
  11. CEPHALEXIN [CEFALEXIN] [Suspect]
     Active Substance: CEPHALEXIN
     Indication: EVIDENCE BASED TREATMENT
     Dosage: UNK
     Route: 064
     Dates: start: 201812

REACTIONS (2)
  - Maternal exposure during pregnancy [Unknown]
  - Premature baby [Unknown]
